FAERS Safety Report 9755850 (Version 1)
Quarter: 2013Q4

REPORT INFORMATION
  Report Type: Spontaneous
  Country: US (occurrence: US)
  Receive Date: 20131213
  Receipt Date: 20131213
  Transmission Date: 20140711
  Serious: No
  Sender: FDA-Public Use
  Company Number: US-GLAXOSMITHKLINE-A1025200A

PATIENT
  Age: 20 Year
  Sex: Male
  Weight: 59 kg

DRUGS (1)
  1. EQUATE NTS 14MG, CLEAR [Suspect]
     Dates: start: 20130526, end: 20130528

REACTIONS (2)
  - Headache [Recovered/Resolved]
  - Dizziness [Recovered/Resolved]
